FAERS Safety Report 4752133-8 (Version None)
Quarter: 2005Q3

REPORT INFORMATION
  Report Type: 
  Country: None (occurrence: None)
  Receive Date: 20050824
  Receipt Date: 20050824
  Transmission Date: 20060218
  Serious: Yes (Other)
  Sender: FDA-Public Use
  Company Number: None

PATIENT
  Age: 34 Year
  Sex: Male
  Weight: 92.5338 kg

DRUGS (1)
  1. IMDUR [Suspect]
     Indication: CORONARY ARTERY DISEASE
     Dosage: 30 MG DAILY PO
     Route: 048
     Dates: start: 20050725, end: 20050823

REACTIONS (1)
  - HEADACHE [None]
